FAERS Safety Report 17859859 (Version 2)
Quarter: 2024Q1

REPORT INFORMATION
  Report Type: Spontaneous
  Country: AU (occurrence: AU)
  Receive Date: 20200604
  Receipt Date: 20240126
  Transmission Date: 20240410
  Serious: Yes (Other)
  Sender: FDA-Public Use
  Company Number: AU-MYLANLABS-2020M1053638

PATIENT
  Age: 47 Year
  Sex: Female

DRUGS (1)
  1. TRAMADOL [Suspect]
     Active Substance: TRAMADOL\TRAMADOL HYDROCHLORIDE
     Indication: Pain
     Dosage: UNK
     Route: 065

REACTIONS (7)
  - Syncope [Unknown]
  - Feeling cold [Unknown]
  - Hyperacusis [Unknown]
  - Asthenia [Unknown]
  - Headache [Unknown]
  - Hyperhidrosis [Unknown]
  - Tremor [Unknown]
